FAERS Safety Report 9338175 (Version 1)
Quarter: 2013Q2

REPORT INFORMATION
  Report Type: Report from Study
  Country: DE (occurrence: DE)
  Receive Date: 20130610
  Receipt Date: 20130610
  Transmission Date: 20140414
  Serious: Yes (Other)
  Sender: FDA-Public Use
  Company Number: DE-ROCHE-1185049

PATIENT
  Age: 74 Year
  Sex: Female
  Weight: 90 kg

DRUGS (36)
  1. TOCILIZUMAB [Suspect]
     Indication: RHEUMATOID ARTHRITIS
     Route: 042
     Dates: start: 20110406
  2. TOCILIZUMAB [Suspect]
     Route: 042
     Dates: start: 20110504
  3. TOCILIZUMAB [Suspect]
     Route: 042
     Dates: start: 20110601
  4. TOCILIZUMAB [Suspect]
     Route: 042
     Dates: start: 20110629
  5. TOCILIZUMAB [Suspect]
     Route: 042
     Dates: start: 20110727
  6. TOCILIZUMAB [Suspect]
     Route: 042
     Dates: start: 20110824
  7. TOCILIZUMAB [Suspect]
     Route: 042
     Dates: start: 20110921
  8. TOCILIZUMAB [Suspect]
     Route: 042
     Dates: start: 20111019
  9. TOCILIZUMAB [Suspect]
     Route: 042
     Dates: start: 20111116
  10. TOCILIZUMAB [Suspect]
     Route: 042
     Dates: start: 20111215
  11. TOCILIZUMAB [Suspect]
     Route: 042
     Dates: start: 20120112
  12. TOCILIZUMAB [Suspect]
     Route: 042
     Dates: start: 20120209
  13. TOCILIZUMAB [Suspect]
     Route: 042
     Dates: start: 20120405
  14. TOCILIZUMAB [Suspect]
     Route: 042
     Dates: start: 20120503
  15. TOCILIZUMAB [Suspect]
     Route: 042
     Dates: start: 20120531
  16. TOCILIZUMAB [Suspect]
     Route: 042
     Dates: start: 20120712
  17. TOCILIZUMAB [Suspect]
     Route: 042
     Dates: start: 20120809
  18. TOCILIZUMAB [Suspect]
     Route: 042
     Dates: start: 20120927
  19. TOCILIZUMAB [Suspect]
     Route: 042
     Dates: start: 20121025
  20. TOCILIZUMAB [Suspect]
     Route: 042
     Dates: start: 20121123
  21. TOCILIZUMAB [Suspect]
     Route: 042
     Dates: start: 20130103
  22. TOCILIZUMAB [Suspect]
     Route: 042
     Dates: start: 20130131
  23. ATORVASTATIN [Concomitant]
     Route: 048
  24. PREDNISOLON [Concomitant]
     Route: 048
  25. PREDNISOLON [Concomitant]
     Route: 048
  26. PREDNISOLON [Concomitant]
     Route: 048
  27. PREDNISOLON [Concomitant]
     Route: 048
  28. PREDNISOLON [Concomitant]
     Route: 048
  29. PREDNISOLON [Concomitant]
     Route: 048
  30. DICLOFENAC [Concomitant]
     Route: 065
  31. FOLIC ACID [Concomitant]
     Route: 065
  32. PANTOPRAZOL [Concomitant]
     Indication: PROPHYLAXIS AGAINST GASTROINTESTINAL ULCER
     Route: 065
  33. VITAMIN D3 [Concomitant]
     Route: 065
  34. ASS-100 [Concomitant]
     Indication: CORONARY ARTERY DISEASE
  35. ENALAPRIL [Concomitant]
     Indication: HYPERTENSION
  36. ALLOPURINOL [Concomitant]
     Indication: HYPERURICAEMIA

REACTIONS (2)
  - Liver function test abnormal [Not Recovered/Not Resolved]
  - Renal failure [Not Recovered/Not Resolved]
